FAERS Safety Report 6504265-1 (Version None)
Quarter: 2009Q4

REPORT INFORMATION
  Report Type: 
  Country: None (occurrence: None)
  Receive Date: 20091217
  Receipt Date: 20091207
  Transmission Date: 20100525
  Serious: Yes (Other)
  Sender: FDA-Public Use
  Company Number: SE-TYCO HEALTHCARE/MALLINCKRODT-T200902302

PATIENT
  Age: 51 Year

DRUGS (1)
  1. SODIUM IODIDE I 131 [Suspect]
     Dosage: UNK, SINGLE
     Route: 048

REACTIONS (1)
  - ENDOCRINE OPHTHALMOPATHY [None]
